FAERS Safety Report 13489333 (Version 5)
Quarter: 2017Q3

REPORT INFORMATION
  Report Type: Spontaneous
  Country: US (occurrence: US)
  Receive Date: 20170427
  Receipt Date: 20170928
  Transmission Date: 20171127
  Serious: Yes (Hospitalization, Disabling, Other)
  Sender: FDA-Public Use
  Company Number: US-PFIZER INC-2017178484

PATIENT
  Age: 57 Year
  Sex: Female
  Weight: 71.67 kg

DRUGS (17)
  1. CHANTIX [Suspect]
     Active Substance: VARENICLINE TARTRATE
     Dosage: ^10 MG^, 2X/DAY
     Route: 048
     Dates: start: 201408, end: 201503
  2. NASONEX [Concomitant]
     Active Substance: MOMETASONE FUROATE
     Indication: HYPERSENSITIVITY
     Dosage: UNK, AS NEEDED, SEASONALLY)
  3. LEXAPRO [Concomitant]
     Active Substance: ESCITALOPRAM OXALATE
     Dosage: UNK
  4. ALPRAZOLAM. [Concomitant]
     Active Substance: ALPRAZOLAM
     Indication: ANXIETY
     Dosage: 0.5 MG, AS NEEDED (BID PRN)
     Dates: start: 20120907, end: 20170329
  5. FIORICET [Concomitant]
     Active Substance: ACETAMINOPHEN\BUTALBITAL\CAFFEINE
     Indication: HEADACHE
     Dosage: 1 DF, AS NEEDED [BUTALBITAL: 50]/[CAFFEINE: 40]/[PARACETAMOL: 325]
  6. CITALOPRAM [Concomitant]
     Active Substance: CITALOPRAM HYDROBROMIDE
     Indication: DEPRESSION
     Dosage: UNK
     Dates: start: 20140305, end: 20150210
  7. ALPRAZOLAM. [Concomitant]
     Active Substance: ALPRAZOLAM
     Indication: DEPRESSION
     Dosage: 0.25 MG, AS NEEDED [0.25 MG Q 6 HRS PRN]
  8. XANAX [Concomitant]
     Active Substance: ALPRAZOLAM
     Dosage: UNK (OCCASIONALLY- 1 PRESCRIPTION PER YEAR)
  9. AMBIEN [Concomitant]
     Active Substance: ZOLPIDEM TARTRATE
     Indication: ANXIETY
     Dosage: 5 MG, 1X/DAY (AT NIGHT)
     Dates: start: 2015
  10. AMBIEN [Concomitant]
     Active Substance: ZOLPIDEM TARTRATE
     Indication: INSOMNIA
  11. CHANTIX [Suspect]
     Active Substance: VARENICLINE TARTRATE
     Indication: SMOKING CESSATION THERAPY
     Dosage: 1 MG, DAILY
     Route: 048
     Dates: start: 20140724, end: 2014
  12. BUSPAR [Concomitant]
     Active Substance: BUSPIRONE HYDROCHLORIDE
     Dosage: UNK
  13. ALBUTEROL. [Concomitant]
     Active Substance: ALBUTEROL
     Dosage: UNK
  14. FIORICET [Concomitant]
     Active Substance: ACETAMINOPHEN\BUTALBITAL\CAFFEINE
     Indication: MIGRAINE
  15. BUTABARBITAL [Concomitant]
     Active Substance: BUTABARBITAL
     Indication: TENSION HEADACHE
     Dosage: UNK, AS NEEDED
     Dates: start: 20120725, end: 20161220
  16. SINGULAIR [Concomitant]
     Active Substance: MONTELUKAST SODIUM
     Dosage: UNK
  17. CHANTIX [Suspect]
     Active Substance: VARENICLINE TARTRATE
     Dosage: ^5 MG^, 1X/DAY
     Route: 048
     Dates: start: 201408, end: 20150316

REACTIONS (18)
  - Nephrolithiasis [Not Recovered/Not Resolved]
  - Mental disorder [Not Recovered/Not Resolved]
  - Memory impairment [Not Recovered/Not Resolved]
  - Disturbance in attention [Not Recovered/Not Resolved]
  - Panic attack [Not Recovered/Not Resolved]
  - Condition aggravated [Not Recovered/Not Resolved]
  - Self-injurious ideation [Not Recovered/Not Resolved]
  - Emotional disorder [Not Recovered/Not Resolved]
  - Disease recurrence [Not Recovered/Not Resolved]
  - Anger [Not Recovered/Not Resolved]
  - Impaired work ability [Not Recovered/Not Resolved]
  - Personality change [Not Recovered/Not Resolved]
  - Anxiety [Not Recovered/Not Resolved]
  - Thinking abnormal [Not Recovered/Not Resolved]
  - Suicidal ideation [Not Recovered/Not Resolved]
  - Frustration tolerance decreased [Not Recovered/Not Resolved]
  - Depression [Not Recovered/Not Resolved]
  - Antisocial personality disorder [Not Recovered/Not Resolved]

NARRATIVE: CASE EVENT DATE: 2014
